FAERS Safety Report 6823855-X (Version None)
Quarter: 2010Q3

REPORT INFORMATION
  Report Type: 
  Country: None (occurrence: None)
  Receive Date: 20100708
  Receipt Date: 20060918
  Transmission Date: 20110219
  Serious: No
  Sender: FDA-Public Use
  Company Number: US-PFIZER INC-2006113340

PATIENT
  Sex: Female
  Weight: 45.36 kg

DRUGS (4)
  1. CHANTIX [Suspect]
     Indication: SMOKING CESSATION THERAPY
     Dates: start: 20060901
  2. ALL OTHER THERAPEUTIC PRODUCTS [Concomitant]
     Indication: DYSPEPSIA
  3. PLAVIX [Concomitant]
  4. PERGOLIDE [Concomitant]
     Indication: RESTLESS LEGS SYNDROME

REACTIONS (11)
  - ADVERSE DRUG REACTION [None]
  - ASTHENIA [None]
  - DIARRHOEA [None]
  - DRUG HYPERSENSITIVITY [None]
  - EMPHYSEMA [None]
  - HEADACHE [None]
  - INFECTION [None]
  - NAUSEA [None]
  - SECRETION DISCHARGE [None]
  - SENSATION OF HEAVINESS [None]
  - VOMITING [None]
